FAERS Safety Report 4467379-6 (Version None)
Quarter: 2004Q4

REPORT INFORMATION
  Report Type: 
  Country: None (occurrence: None)
  Receive Date: 20041006
  Receipt Date: 20040804
  Transmission Date: 20050328
  Serious: Yes (Death, Disabling)
  Sender: FDA-Public Use
  Company Number: PHBS2004JP10358

PATIENT
  Age: 60 Year
  Sex: Female

DRUGS (4)
  1. SIMULECT [Suspect]
     Indication: LIVER TRANSPLANT
     Route: 065
  2. NEORAL [Suspect]
     Indication: LIVER TRANSPLANT
     Route: 065
  3. TACROLIMUS [Suspect]
     Indication: LIVER TRANSPLANT
     Route: 065
  4. STEROIDS NOS [Suspect]
     Indication: LIVER TRANSPLANT
     Route: 065

REACTIONS (10)
  - BILIARY TRACT DISORDER [None]
  - BLOOD BILIRUBIN INCREASED [None]
  - CHOLESTASIS [None]
  - HEPATIC FAILURE [None]
  - HEPATITIS C [None]
  - HEPATOCELLULAR DAMAGE [None]
  - HEPATOMEGALY [None]
  - HYPERPLASIA [None]
  - LIVER TRANSPLANT REJECTION [None]
  - PULMONARY MYCOSIS [None]
